FAERS Safety Report 20057188 (Version 2)
Quarter: 2022Q3

REPORT INFORMATION
  Report Type: Spontaneous
  Country: JP (occurrence: JP)
  Receive Date: 20211111
  Receipt Date: 20220930
  Transmission Date: 20221026
  Serious: Yes (Life-Threatening, Hospitalization, Other)
  Sender: FDA-Public Use
  Company Number: JP-TAKEDA-2021TJP114242

PATIENT

DRUGS (1)
  1. ZEJULA [Suspect]
     Active Substance: NIRAPARIB
     Indication: Ovarian cancer
     Dosage: 200 MG, QD
     Route: 048
     Dates: start: 20210901, end: 20210914

REACTIONS (12)
  - Pancytopenia [Recovering/Resolving]
  - Vomiting [Recovering/Resolving]
  - Stomatitis [Recovering/Resolving]
  - Mouth haemorrhage [Recovering/Resolving]
  - Conjunctival pallor [Recovering/Resolving]
  - Haemorrhage subcutaneous [Recovering/Resolving]
  - Gastrointestinal wall thickening [Unknown]
  - Decreased appetite [Unknown]
  - Weight bearing difficulty [Unknown]
  - General physical health deterioration [Recovered/Resolved]
  - Myelosuppression [Unknown]
  - Nausea [Unknown]

NARRATIVE: CASE EVENT DATE: 20210914
